FAERS Safety Report 5070001-1 (Version None)
Quarter: 2006Q3

REPORT INFORMATION
  Report Type: 
  Country: None (occurrence: None)
  Receive Date: 20060731
  Receipt Date: 20060718
  Transmission Date: 20061208
  Serious: Yes (Other)
  Sender: FDA-Public Use
  Company Number: 2005BH000047

PATIENT
  Age: 72 Year
  Sex: Male

DRUGS (3)
  1. HEPARIN SODIUM [Suspect]
     Dosage: SEE IMAGE, IV
     Route: 042
  2. ASPIRIN [Suspect]
  3. CLOPIDOGREL [Suspect]

REACTIONS (6)
  - CAROTID ARTERY STENOSIS [None]
  - CEREBRAL INFARCTION [None]
  - CHEST PAIN [None]
  - HEPARIN-INDUCED THROMBOCYTOPENIA [None]
  - POST PROCEDURAL COMPLICATION [None]
  - THROMBOTIC STROKE [None]
